FAERS Safety Report 25047460 (Version 1)
Quarter: 2025Q1

REPORT INFORMATION
  Report Type: Spontaneous
  Country: US (occurrence: US)
  Receive Date: 20250306
  Receipt Date: 20250306
  Transmission Date: 20250409
  Serious: Yes (Hospitalization, Other)
  Sender: SANOFI AVENTIS
  Company Number: US-SA-2025SA066592

PATIENT
  Age: 78 Year
  Sex: Female
  Weight: 68.18 kg

DRUGS (20)
  1. DUPIXENT [Suspect]
     Active Substance: DUPILUMAB
     Indication: Dermatitis atopic
     Dosage: 300 MG, QOW
     Route: 058
     Dates: start: 202411
  2. REPATHA [Concomitant]
     Active Substance: EVOLOCUMAB
  3. BIOTIN [Concomitant]
     Active Substance: BIOTIN
  4. VITAMIN D3 [Concomitant]
     Active Substance: CHOLECALCIFEROL
  5. MENATETRENONE [Concomitant]
     Active Substance: MENATETRENONE
  6. CYANOCOBALAMIN\FOLIC ACID [Concomitant]
     Active Substance: CYANOCOBALAMIN\FOLIC ACID
  7. CALCIUM [Concomitant]
     Active Substance: CALCIUM
  8. AVEENO [Concomitant]
     Active Substance: DIMETHICONE\HOMOSALATE\OCTINOXATE\OCTISALATE\TITANIUM DIOXIDE
  9. MUPIROCIN [Concomitant]
     Active Substance: MUPIROCIN
  10. FLUOROURACIL [Concomitant]
     Active Substance: FLUOROURACIL
  11. ESTRADIOL [Concomitant]
     Active Substance: ESTRADIOL
  12. PROGESTERONE [Concomitant]
     Active Substance: PROGESTERONE
  13. CYTOMEL [Concomitant]
     Active Substance: LIOTHYRONINE SODIUM
  14. LISINOPRIL [Concomitant]
     Active Substance: LISINOPRIL
  15. DOXYCYCLINE HYCLATE [Concomitant]
     Active Substance: DOXYCYCLINE HYCLATE
  16. PRASTERONE [Concomitant]
     Active Substance: PRASTERONE
  17. GABAPENTIN [Concomitant]
     Active Substance: GABAPENTIN
  18. VALTREX [Concomitant]
     Active Substance: VALACYCLOVIR HYDROCHLORIDE
  19. VOLTAREN ARTHRITIS PAIN [Concomitant]
     Active Substance: DICLOFENAC SODIUM
  20. ASPIRIN [Concomitant]
     Active Substance: ASPIRIN

REACTIONS (4)
  - Femur fracture [Unknown]
  - Fall [Unknown]
  - Dry skin [Unknown]
  - Pruritus [Unknown]

NARRATIVE: CASE EVENT DATE: 20250201
